FAERS Safety Report 6050344-5 (Version None)
Quarter: 2009Q1

REPORT INFORMATION
  Report Type: 
  Country: None (occurrence: None)
  Receive Date: 20090126
  Receipt Date: 20090116
  Transmission Date: 20090719
  Serious: Yes (Disabling)
  Sender: FDA-Public Use
  Company Number: GB-AMGEN-US328865

PATIENT
  Sex: Male
  Weight: 94 kg

DRUGS (3)
  1. ENBREL [Suspect]
     Indication: RHEUMATOID ARTHRITIS
     Route: 058
     Dates: start: 20061229, end: 20081223
  2. FOLIC ACID [Concomitant]
     Dosage: 5 MG 1 PER DAY EXCEPT MTX DAY
     Route: 048
  3. METHOTREXATE [Concomitant]
     Indication: RHEUMATOID ARTHRITIS
     Route: 058
     Dates: start: 20061229

REACTIONS (1)
  - DRUG INEFFECTIVE [None]
